FAERS Safety Report 23391894 (Version 1)
Quarter: 2024Q1

REPORT INFORMATION
  Report Type: Spontaneous
  Country: US (occurrence: None)
  Receive Date: 20240110
  Receipt Date: 20240110
  Transmission Date: 20240410
  Serious: Yes (Death)
  Sender: FDA-Public Use
  Company Number: None

PATIENT
  Age: 80 Year
  Sex: Male

DRUGS (16)
  1. REPATHA [Suspect]
     Active Substance: EVOLOCUMAB
     Indication: Hypercholesterolaemia
     Dosage: OTHER FREQUENCY : EVERY 14 DAYS;?
     Route: 058
     Dates: start: 20200220, end: 20231220
  2. AMLODIPINE BESYLATE [Concomitant]
     Active Substance: AMLODIPINE BESYLATE
  3. CREON [Concomitant]
     Active Substance: PANCRELIPASE AMYLASE\PANCRELIPASE LIPASE\PANCRELIPASE PROTEASE
  4. GLIMEPIRIDE [Concomitant]
     Active Substance: GLIMEPIRIDE
  5. VASCEPA [Concomitant]
     Active Substance: ICOSAPENT ETHYL
  6. asmanex hfa 100mcg [Concomitant]
  7. AZELASTINE [Concomitant]
     Active Substance: AZELASTINE\AZELASTINE HYDROCHLORIDE
  8. LOSARTAN [Concomitant]
     Active Substance: LOSARTAN
  9. nexletol 180mg [Concomitant]
  10. PANTOPRAZOLE [Concomitant]
     Active Substance: PANTOPRAZOLE
  11. SYMTUZA [Concomitant]
     Active Substance: COBICISTAT\DARUNAVIR\EMTRICITABINE\TENOFOVIR ALAFENAMIDE
  12. benzonatate 100 [Concomitant]
  13. SERTRALINE HYDROCHLORIDE [Concomitant]
     Active Substance: SERTRALINE HYDROCHLORIDE
  14. selzentry 300mg [Concomitant]
  15. JARDIANCE [Concomitant]
     Active Substance: EMPAGLIFLOZIN
  16. TAMSULOSIN [Concomitant]
     Active Substance: TAMSULOSIN

REACTIONS (1)
  - Death [None]

NARRATIVE: CASE EVENT DATE: 20231221
